FAERS Safety Report 24551102 (Version 2)
Quarter: 2025Q3

REPORT INFORMATION
  Report Type: Report from Study
  Country: EU (occurrence: EU)
  Receive Date: 20241025
  Receipt Date: 20250809
  Transmission Date: 20251021
  Serious: Yes (Other)
  Sender: ALEXION PHARMACEUTICALS
  Company Number: EU-ASTRAZENECA-202409GLO002164FR

PATIENT
  Age: 56 Year
  Sex: Female

DRUGS (5)
  1. OLAPARIB [Suspect]
     Active Substance: OLAPARIB
     Indication: Ovarian cancer stage IV
     Dosage: 400 MILLIGRAM, BID
  2. CARBOPLATIN [Concomitant]
     Active Substance: CARBOPLATIN
     Indication: Ovarian cancer stage IV
  3. PACLITAXEL [Concomitant]
     Active Substance: PACLITAXEL
     Indication: Ovarian cancer stage IV
  4. BEVACIZUMAB [Concomitant]
     Active Substance: BEVACIZUMAB
     Indication: Ovarian cancer stage IV
  5. DOXORUBICIN [Concomitant]
     Active Substance: DOXORUBICIN
     Indication: Ovarian cancer stage IV

REACTIONS (1)
  - Interstitial lung disease [Recovered/Resolved]
